FAERS Safety Report 22608670 (Version 1)
Quarter: 2023Q2

REPORT INFORMATION
  Report Type: Spontaneous
  Country: CN (occurrence: CN)
  Receive Date: 20230616
  Receipt Date: 20230616
  Transmission Date: 20230722
  Serious: Yes (Life-Threatening, Other)
  Sender: FDA-Public Use
  Company Number: None

PATIENT
  Age: 31 Year
  Sex: Female
  Weight: 51 kg

DRUGS (4)
  1. CYCLOPHOSPHAMIDE [Suspect]
     Active Substance: CYCLOPHOSPHAMIDE
     Indication: Philadelphia positive acute lymphocytic leukaemia
     Dosage: 2800 MG, QD, D3-D4
     Route: 041
     Dates: start: 20230526, end: 20230527
  2. CYCLOPHOSPHAMIDE [Suspect]
     Active Substance: CYCLOPHOSPHAMIDE
     Indication: Prophylaxis against transplant rejection
  3. MESNA [Suspect]
     Active Substance: MESNA
     Indication: Philadelphia positive acute lymphocytic leukaemia
     Dosage: 0/3/6/9 HOURS BEFORE ADMINISTRATION
     Route: 065
  4. MESNA [Suspect]
     Active Substance: MESNA
     Indication: Prophylaxis against transplant rejection

REACTIONS (5)
  - Ventricular tachycardia [Unknown]
  - Palpitations [Unknown]
  - Chest discomfort [Unknown]
  - Cardiac failure acute [Unknown]
  - Pericardial effusion [Unknown]

NARRATIVE: CASE EVENT DATE: 20230607
